FAERS Safety Report 20580309 (Version 2)
Quarter: 2022Q1

REPORT INFORMATION
  Report Type: Spontaneous
  Country: DE (occurrence: DE)
  Receive Date: 20220311
  Receipt Date: 20220318
  Transmission Date: 20220423
  Serious: Yes (Other)
  Sender: FDA-Public Use
  Company Number: DE-Desitin-2022-00485

PATIENT
  Age: 15 Year
  Sex: Male

DRUGS (3)
  1. OLANZAPINE [Suspect]
     Active Substance: OLANZAPINE
     Indication: Schizoaffective disorder
     Dosage: UNK
     Route: 065
  2. PROMETHAZINE [Suspect]
     Active Substance: PROMETHAZINE HYDROCHLORIDE
     Indication: Schizoaffective disorder
     Dosage: UNK
     Route: 065
  3. VALPROATE [Suspect]
     Active Substance: VALPROIC ACID
     Indication: Epilepsy
     Dosage: UNK
     Route: 065

REACTIONS (4)
  - Factor VIII deficiency [Recovered/Resolved]
  - Von Willebrand^s disease [Recovered/Resolved]
  - Dizziness [Unknown]
  - Product use in unapproved indication [Unknown]
